FAERS Safety Report 10040801 (Version 1)
Quarter: 2014Q1

REPORT INFORMATION
  Report Type: Report from Study
  Country: US (occurrence: US)
  Receive Date: 20140327
  Receipt Date: 20140327
  Transmission Date: 20141002
  Serious: Yes (Other)
  Sender: FDA-Public Use
  Company Number: US-ROCHE-1366835

PATIENT
  Age: 83 Year
  Sex: Female
  Weight: 49.94 kg

DRUGS (3)
  1. AVASTIN [Suspect]
     Indication: LUNG NEOPLASM MALIGNANT
     Route: 065
     Dates: start: 201310
  2. ZANTAC [Concomitant]
     Indication: GASTROOESOPHAGEAL REFLUX DISEASE
     Route: 048
  3. COUMADIN [Concomitant]
     Dosage: 7.5 MG (1 1/2 TABLETS) FOR 4 DAYS AND 5 MG FOR 3 D
     Route: 065

REACTIONS (6)
  - Device related infection [Recovered/Resolved]
  - Heart rate irregular [Not Recovered/Not Resolved]
  - Decreased appetite [Recovered/Resolved]
  - Weight decreased [Recovering/Resolving]
  - Pain [Recovered/Resolved]
  - Epistaxis [Recovering/Resolving]
